FAERS Safety Report 4609532-4 (Version None)
Quarter: 2005Q1

REPORT INFORMATION
  Report Type: 
  Country: None (occurrence: None)
  Receive Date: 20050311
  Receipt Date: 20050228
  Transmission Date: 20050727
  Serious: Yes (Hospitalization)
  Sender: FDA-Public Use
  Company Number: GXKR2005US00553

PATIENT
  Age: 75 Year
  Sex: Male

DRUGS (5)
  1. SIMVASTATIN [Suspect]
     Indication: HYPERCHOLESTEROLAEMIA
     Dosage: ORAL
     Route: 048
  2. AMOXICILLIN [Suspect]
     Indication: RESPIRATORY TRACT INFECTION
     Dosage: 500 MG, TID, ORAL
     Route: 048
  3. LISINOPRIL [Concomitant]
  4. CARVEDILOL [Concomitant]
  5. ASPIRIN [Concomitant]

REACTIONS (10)
  - ASTHENIA [None]
  - BLOOD URINE PRESENT [None]
  - FATIGUE [None]
  - HEPATIC ENZYME INCREASED [None]
  - HEPATIC FUNCTION ABNORMAL [None]
  - METABOLIC ACIDOSIS [None]
  - PAIN [None]
  - PULMONARY OEDEMA [None]
  - RENAL IMPAIRMENT [None]
  - RHABDOMYOLYSIS [None]
